FAERS Safety Report 10137563 (Version 1)
Quarter: 2014Q2

REPORT INFORMATION
  Report Type: Spontaneous
  Country: BR (occurrence: BR)
  Receive Date: 20140429
  Receipt Date: 20140429
  Transmission Date: 20141212
  Serious: Yes (Hospitalization, Other)
  Sender: FDA-Public Use
  Company Number: BR-ROCHE-1385424

PATIENT
  Sex: Female
  Weight: 80 kg

DRUGS (6)
  1. LEXOTAN [Suspect]
     Indication: INSOMNIA
     Dosage: 3 MG IN THE MORNING AND 6 MG AT NIGHT
     Route: 065
     Dates: start: 2007, end: 20140410
  2. LEXOTAN [Suspect]
     Indication: FEELING OF RELAXATION
  3. RIVOTRIL [Suspect]
     Indication: ANXIETY
     Dosage: HALF TABLET AT NIGHT
     Route: 048
     Dates: start: 20140410
  4. RIVOTRIL [Suspect]
     Indication: INSOMNIA
  5. RIVOTRIL [Suspect]
     Indication: FEELING OF RELAXATION
  6. CLONAZEPAM [Suspect]
     Indication: FEELING OF RELAXATION
     Dosage: HALF TABLET
     Route: 048
     Dates: start: 2009, end: 2009

REACTIONS (10)
  - Cholelithiasis [Recovered/Resolved]
  - Depression [Not Recovered/Not Resolved]
  - Panic disorder [Not Recovered/Not Resolved]
  - Drug ineffective [Unknown]
  - Visual impairment [Not Recovered/Not Resolved]
  - Hepatic steatosis [Not Recovered/Not Resolved]
  - Fluid retention [Not Recovered/Not Resolved]
  - Blood cholesterol increased [Not Recovered/Not Resolved]
  - Vitamin D deficiency [Not Recovered/Not Resolved]
  - Product taste abnormal [Unknown]
